FAERS Safety Report 4849952-6 (Version None)
Quarter: 2005Q4

REPORT INFORMATION
  Report Type: 
  Country: None (occurrence: None)
  Receive Date: 20051101
  Receipt Date: 20050603
  Transmission Date: 20060501
  Serious: Yes (Other)
  Sender: FDA-Public Use
  Company Number: 200510283BCA

PATIENT
  Sex: Female

DRUGS (4)
  1. GAMUNEX [Suspect]
     Indication: DRUG USE FOR UNKNOWN INDICATION
     Dosage: INTRAVENOUS
     Route: 042
     Dates: start: 20050523
  2. GAMUNEX [Suspect]
     Dosage: INTRAVENOUS
     Route: 042
  3. GAMUNEX [Suspect]
     Dosage: INTRAVENOUS
     Route: 042
  4. GAMUNEX [Suspect]
     Dosage: INTRAVENOUS
     Route: 042

REACTIONS (1)
  - HAEMOLYTIC ANAEMIA [None]
